FAERS Safety Report 19725063 (Version 2)
Quarter: 2021Q3

REPORT INFORMATION
  Report Type: Report from Study
  Country: US (occurrence: US)
  Receive Date: 20210820
  Receipt Date: 20210828
  Transmission Date: 20211014
  Serious: No
  Sender: FDA-Public Use
  Company Number: NVSC2021US186146

PATIENT
  Sex: Female

DRUGS (2)
  1. ENTRESTO [Suspect]
     Active Substance: SACUBITRIL\VALSARTAN
     Indication: PRODUCT USED FOR UNKNOWN INDICATION
     Dosage: UNK UNK, BID
     Route: 048
  2. ENTRESTO [Suspect]
     Active Substance: SACUBITRIL\VALSARTAN
     Dosage: 1 DF (97/103MG), BID
     Route: 048

REACTIONS (5)
  - Hypertension [Unknown]
  - Headache [Unknown]
  - Blood pressure fluctuation [Unknown]
  - Dizziness [Unknown]
  - Insomnia [Unknown]
